FAERS Safety Report 24113257 (Version 1)
Quarter: 2024Q3

REPORT INFORMATION
  Report Type: Spontaneous
  Country: US (occurrence: US)
  Receive Date: 20240719
  Receipt Date: 20240719
  Transmission Date: 20241016
  Serious: Yes (Other)
  Sender: ELI LILLY AND CO
  Company Number: US-ELI_LILLY_AND_COMPANY-US202407007425

PATIENT
  Age: 61 Year
  Sex: Female

DRUGS (1)
  1. TIRZEPATIDE [Suspect]
     Active Substance: TIRZEPATIDE
     Indication: Weight decreased
     Dosage: UNK, UNKNOWN
     Route: 058

REACTIONS (8)
  - Hallucination, visual [Recovered/Resolved]
  - Paranoia [Recovered/Resolved]
  - Headache [Unknown]
  - Hypertransaminasaemia [Unknown]
  - Vomiting [Unknown]
  - Diarrhoea [Unknown]
  - Product tampering [Unknown]
  - Off label use [Unknown]
